FAERS Safety Report 22055682 (Version 1)
Quarter: 2023Q1

REPORT INFORMATION
  Report Type: Spontaneous
  Country: US (occurrence: None)
  Receive Date: 20230302
  Receipt Date: 20230302
  Transmission Date: 20230417
  Serious: Yes (Hospitalization)
  Sender: FDA-Public Use
  Company Number: None

PATIENT
  Age: 75 Year
  Sex: Female
  Weight: 66.22 kg

DRUGS (23)
  1. EVENITY [Suspect]
     Active Substance: ROMOSOZUMAB-AQQG
     Indication: Senile osteoporosis
     Dosage: 210MG  Q30DAYS IV?
     Route: 042
     Dates: start: 202211
  2. ASPIRIN [Concomitant]
     Active Substance: ASPIRIN
  3. ATENOLOL [Concomitant]
     Active Substance: ATENOLOL
  4. CETIRIZINE [Concomitant]
     Active Substance: CETIRIZINE HYDROCHLORIDE
  5. CHLORTHALIDONE [Concomitant]
     Active Substance: CHLORTHALIDONE
  6. DIAZEPAM [Concomitant]
     Active Substance: DIAZEPAM
  7. DIETARY SUPPLEMENT [Concomitant]
     Active Substance: DIETARY SUPPLEMENT
  8. FOLIC ACID [Concomitant]
  9. HYDRALAZINE [Concomitant]
     Active Substance: HYDRALAZINE HYDROCHLORIDE
  10. METHYLPREDNISOLONE [Concomitant]
     Active Substance: METHYLPREDNISOLONE
  11. VITAMINS [Concomitant]
     Active Substance: VITAMINS
  12. OTEZLA [Concomitant]
     Active Substance: APREMILAST
  13. PANTOPRAZOLE [Concomitant]
     Active Substance: PANTOPRAZOLE
  14. PLAVIX [Concomitant]
     Active Substance: CLOPIDOGREL BISULFATE
  15. PRAVASTATIN [Concomitant]
  16. PROCHLORPERAZINE [Concomitant]
     Active Substance: PROCHLORPERAZINE
  17. RASUVO [Concomitant]
     Active Substance: METHOTREXATE SODIUM
  18. REMICASE [Concomitant]
  19. TRAMADOL [Concomitant]
     Active Substance: TRAMADOL
  20. TRULICITY [Concomitant]
     Active Substance: DULAGLUTIDE
  21. TYLENOL [Concomitant]
     Active Substance: ACETAMINOPHEN
  22. VALACYCLOVIR [Concomitant]
     Active Substance: VALACYCLOVIR HYDROCHLORIDE
  23. VITAMIN D3 [Concomitant]
     Active Substance: CHOLECALCIFEROL

REACTIONS (1)
  - Crohn^s disease [None]
